FAERS Safety Report 10188155 (Version 1)
Quarter: 2014Q2

REPORT INFORMATION
  Report Type: Spontaneous
  Country: SD (occurrence: SD)
  Receive Date: 20140522
  Receipt Date: 20140522
  Transmission Date: 20141212
  Serious: Yes (Death)
  Sender: FDA-Public Use
  Company Number: SD-SA-2014SA063355

PATIENT
  Age: 50 Year
  Sex: Male

DRUGS (4)
  1. CLEXANE [Suspect]
     Indication: PRODUCT USED FOR UNKNOWN INDICATION
     Route: 065
  2. CLEXANE [Suspect]
     Indication: PRODUCT USED FOR UNKNOWN INDICATION
     Route: 065
  3. CEFUROXIME [Concomitant]
     Route: 042
  4. DICLOFENAC SODIUM [Concomitant]
     Route: 030

REACTIONS (2)
  - Respiratory distress [Fatal]
  - Dyspnoea [Fatal]
